FAERS Safety Report 10561952 (Version 1)
Quarter: 2014Q4

REPORT INFORMATION
  Report Type: Spontaneous
  Country: US (occurrence: US)
  Receive Date: 20141104
  Receipt Date: 20141104
  Transmission Date: 20150529
  Serious: No
  Sender: FDA-Public Use
  Company Number: US-ASTRAZENECA-2014SE80878

PATIENT
  Age: 19906 Day
  Sex: Female
  Weight: 51.7 kg

DRUGS (8)
  1. SYMBICORT [Suspect]
     Active Substance: BUDESONIDE\FORMOTEROL FUMARATE DIHYDRATE
     Indication: ALLERGIC BRONCHITIS
     Dosage: 160/4.5 MCG, TWO TIMES A DAY
     Route: 055
  2. OTC LORATIN [Concomitant]
     Indication: HYPERSENSITIVITY
     Route: 048
  3. NORVASC [Concomitant]
     Active Substance: AMLODIPINE BESYLATE
     Indication: HYPERTENSION
     Route: 048
     Dates: start: 2013
  4. SYMBICORT [Suspect]
     Active Substance: BUDESONIDE\FORMOTEROL FUMARATE DIHYDRATE
     Indication: ALLERGIC BRONCHITIS
     Dosage: 80/4.5 MCG, UNKNOWN
     Route: 055
  5. OTC ALLEGRA [Concomitant]
     Indication: HYPERSENSITIVITY
     Route: 048
  6. PROVENTIL [Concomitant]
     Active Substance: ALBUTEROL
     Indication: RESPIRATORY DISORDER
     Route: 055
     Dates: start: 201401
  7. ARIMIDEX [Suspect]
     Active Substance: ANASTROZOLE
     Indication: BREAST CANCER
     Route: 048
     Dates: start: 20140901
  8. SYMBICORT [Suspect]
     Active Substance: BUDESONIDE\FORMOTEROL FUMARATE DIHYDRATE
     Indication: ALLERGIC BRONCHITIS
     Dosage: UNKNOWN, AS NEEDED IN THE SPRING AND FALL
     Route: 055

REACTIONS (6)
  - Systemic lupus erythematosus [Unknown]
  - Lymphadenopathy [Not Recovered/Not Resolved]
  - Vasculitis [Unknown]
  - Drug effect decreased [Not Recovered/Not Resolved]
  - Rash pruritic [Not Recovered/Not Resolved]
  - Intentional product misuse [Not Recovered/Not Resolved]

NARRATIVE: CASE EVENT DATE: 2014
